FAERS Safety Report 6134704-X (Version None)
Quarter: 2009Q1

REPORT INFORMATION
  Report Type: 
  Country: None (occurrence: None)
  Receive Date: 20090327
  Receipt Date: 20090318
  Transmission Date: 20090719
  Serious: Yes (Death, Hospitalization)
  Sender: FDA-Public Use
  Company Number: HU-ROCHE-591511

PATIENT
  Sex: Male
  Weight: 57 kg

DRUGS (2)
  1. INTERFERON ALFA [Suspect]
     Indication: RENAL CELL CARCINOMA
     Dosage: DRUG NAME REPORTED AS INTERFERON DOSE 3 MU AND FREQUENCY WEEKLY 3
     Route: 058
     Dates: start: 20080925, end: 20081009
  2. BEVACIZUMAB [Suspect]
     Indication: RENAL CELL CARCINOMA
     Dosage: FREQUENCY REPORTED AS BI WEEKLY
     Route: 042
     Dates: start: 20080925, end: 20081009

REACTIONS (2)
  - ANOREXIA [None]
  - ASTHENIA [None]
